FAERS Safety Report 7843182-1 (Version None)
Quarter: 2011Q4

REPORT INFORMATION
  Report Type: 
  Country: None (occurrence: None)
  Receive Date: 20111025
  Receipt Date: 20111021
  Transmission Date: 20120403
  Serious: Yes (Other)
  Sender: FDA-Public Use
  Company Number: US-PFIZER INC-2011255902

PATIENT
  Sex: Female
  Weight: 83.447 kg

DRUGS (5)
  1. VALIUM [Concomitant]
     Indication: MUSCLE SPASMS
     Dosage: 5 MG ONE IN THE MORNING AND TWO AT NIGHT
  2. OXYCONTIN [Concomitant]
     Dosage: 20 MG, 2X/DAY
  3. LYRICA [Suspect]
     Indication: PAIN
     Dosage: 75 MG, DAILY
     Dates: start: 20060101
  4. BENTYL [Concomitant]
     Indication: GASTROINTESTINAL PAIN
     Dosage: 20 MG, 4X/DAY
  5. PERCOCET [Concomitant]
     Dosage: ONE TABLET, EVERY FOUR HOURS AS NEEDED

REACTIONS (2)
  - DRUG INEFFECTIVE [None]
  - WEIGHT INCREASED [None]
